FAERS Safety Report 10022868 (Version 1)
Quarter: 2014Q1

REPORT INFORMATION
  Report Type: Report from Study
  Country: GB (occurrence: GB)
  Receive Date: 20140319
  Receipt Date: 20140319
  Transmission Date: 20141002
  Serious: Yes (Hospitalization)
  Sender: FDA-Public Use
  Company Number: GB-PFIZER INC-2014069608

PATIENT
  Age: 86 Year
  Sex: Female
  Weight: 47 kg

DRUGS (1)
  1. TEMSIROLIMUS [Suspect]
     Indication: MANTLE CELL LYMPHOMA
     Dosage: 175 MG, ONCE A WEEK
     Route: 042
     Dates: start: 20131016, end: 20131030

REACTIONS (1)
  - Confusional state [Not Recovered/Not Resolved]
